FAERS Safety Report 5939441-X (Version None)
Quarter: 2008Q4

REPORT INFORMATION
  Report Type: 
  Country: None (occurrence: None)
  Receive Date: 20081029
  Receipt Date: 20081014
  Transmission Date: 20090506
  Serious: Yes (Hospitalization)
  Sender: FDA-Public Use
  Company Number: DSA_32517_2008

PATIENT
  Age: 53 Year
  Sex: Female
  Weight: 83 kg

DRUGS (2)
  1. DICLOFENAC SODIUM [Suspect]
     Indication: ARTHROPATHY
     Dosage: DF ORAL
     Route: 048
  2. DICLOFENAC SODIUM [Suspect]
     Indication: MYALGIA
     Dosage: DF ORAL
     Route: 048

REACTIONS (7)
  - ARTERIOSCLEROSIS [None]
  - GLOMERULONEPHRITIS MINIMAL LESION [None]
  - NEPHROTIC SYNDROME [None]
  - RED BLOOD CELL SEDIMENTATION RATE INCREASED [None]
  - RENAL FAILURE ACUTE [None]
  - RENAL TUBULAR NECROSIS [None]
  - RETINOPATHY HYPERTENSIVE [None]
